FAERS Safety Report 4315970-X (Version None)
Quarter: 2004Q1

REPORT INFORMATION
  Report Type: 
  Country: None (occurrence: None)
  Receive Date: 20040310
  Receipt Date: 20040225
  Transmission Date: 20041129
  Serious: Yes (Hospitalization, Other)
  Sender: FDA-Public Use
  Company Number: 2004012873

PATIENT
  Age: 55 Year
  Sex: Female

DRUGS (6)
  1. ZOLOFT [Suspect]
     Indication: DEPRESSION
     Dosage: (DAILY), ORAL
     Route: 048
     Dates: start: 20040101, end: 20040203
  2. VERALIPRIDE (VERALIPRIDE) [Suspect]
     Indication: ILL-DEFINED DISORDER
     Dosage: (DAILY), ORAL
     Route: 048
     Dates: start: 20040101, end: 20040203
  3. BUSPIRONE HCL [Concomitant]
  4. TENORETIC 100 [Concomitant]
  5. ZOLPIDEM TARTRATE [Concomitant]
  6. ALPRAZOLAM [Concomitant]

REACTIONS (6)
  - ANXIETY [None]
  - CHILLS [None]
  - COGWHEEL RIGIDITY [None]
  - DRUG INTERACTION [None]
  - HYPERTONIA [None]
  - TREMOR [None]
